FAERS Safety Report 14743811 (Version 2)
Quarter: 2018Q2

REPORT INFORMATION
  Report Type: Spontaneous
  Country: IL (occurrence: IL)
  Receive Date: 20180410
  Receipt Date: 20180502
  Transmission Date: 20180711
  Serious: Yes (Hospitalization)
  Sender: FDA-Public Use
  Company Number: IL-TEVA-2018-IL-878929

PATIENT
  Sex: Female

DRUGS (3)
  1. SODIUM CHLORIDE 0.9% 100ML EP [Suspect]
     Active Substance: SODIUM CHLORIDE
     Route: 065
  2. FLUOROURACIL 5G AMP [Suspect]
     Active Substance: FLUOROURACIL
     Indication: ADENOCARCINOMA
     Dosage: 4500 MG VIA INFUSER FOR 48 HOURS, PHARMACY PREPARATION
     Route: 065
     Dates: start: 20180311
  3. FLUOROURACIL 5G AMP [Suspect]
     Active Substance: FLUOROURACIL
     Dosage: 4500 MG VIA INFUSER FOR 48 HOURS, PHARMACY PREPARATION
     Route: 065
     Dates: start: 20180325

REACTIONS (2)
  - Pyrexia [Recovered/Resolved]
  - Chills [Recovered/Resolved]

NARRATIVE: CASE EVENT DATE: 20180325
